FAERS Safety Report 7956182-8 (Version None)
Quarter: 2011Q4

REPORT INFORMATION
  Report Type: 
  Country: None (occurrence: None)
  Receive Date: 20111205
  Receipt Date: 20070608
  Transmission Date: 20120403
  Serious: Yes (Life-Threatening)
  Sender: FDA-Public Use
  Company Number: DE-US-EMD SERONO, INC.-230020M07DEU

PATIENT
  Sex: Female
  Weight: 80 kg

DRUGS (4)
  1. REBIF [Suspect]
     Indication: MULTIPLE SCLEROSIS
     Route: 058
  2. RANIBETA [Concomitant]
     Indication: GASTRITIS
     Route: 048
  3. RANIBETA [Concomitant]
     Indication: GASTROOESOPHAGEAL REFLUX DISEASE
  4. MCP TLBS. [Concomitant]
     Indication: NAUSEA
     Route: 048

REACTIONS (1)
  - ACUTE MYELOID LEUKAEMIA [None]
